FAERS Safety Report 8579534-4 (Version None)
Quarter: 2012Q3

REPORT INFORMATION
  Report Type: 
  Country: None (occurrence: None)
  Receive Date: 20120726
  Receipt Date: 20120716
  Transmission Date: 20120928
  Serious: Yes (Other)
  Sender: FDA-Public Use
  Company Number: 2012MA008979

PATIENT
  Sex: Female

DRUGS (2)
  1. TRAMADOL HYDROCHLORIDE [Suspect]
     Indication: PAIN
     Dosage: 200 MG;PO
     Route: 048
     Dates: end: 20010101
  2. OXYCODONE HCL [Concomitant]

REACTIONS (1)
  - DRUG TOLERANCE [None]
